FAERS Safety Report 10727779 (Version 1)
Quarter: 2015Q1

REPORT INFORMATION
  Report Type: Spontaneous
  Country: US (occurrence: US)
  Receive Date: 20150121
  Receipt Date: 20150121
  Transmission Date: 20150721
  Serious: Yes (Hospitalization, Other)
  Sender: FDA-Public Use
  Company Number: US-GLAXOSMITHKLINE INC.-US2015GSK007120

PATIENT
  Age: 65 Year
  Sex: Male

DRUGS (4)
  1. LISINOPRIL. [Suspect]
     Active Substance: LISINOPRIL
  2. OXYCODONE [Concomitant]
     Active Substance: OXYCODONE
  3. VOTRIENT [Suspect]
     Active Substance: PAZOPANIB HYDROCHLORIDE
     Indication: CLEAR CELL RENAL CELL CARCINOMA
     Dosage: 800 MG, QD
     Dates: start: 201304, end: 201407
  4. VOTRIENT [Suspect]
     Active Substance: PAZOPANIB HYDROCHLORIDE
     Dosage: 600 MG, QD
     Dates: start: 201407

REACTIONS (15)
  - Paraesthesia [Unknown]
  - Acute kidney injury [Unknown]
  - Fatigue [Unknown]
  - Diarrhoea [Unknown]
  - Hypoaesthesia [Unknown]
  - Dyspnoea exertional [Unknown]
  - Renal tubular necrosis [Unknown]
  - Headache [Unknown]
  - Neuropathy peripheral [Unknown]
  - Hypovolaemia [Unknown]
  - Musculoskeletal chest pain [Unknown]
  - Hair colour changes [Unknown]
  - Performance status decreased [Unknown]
  - Disease progression [Unknown]
  - Malaise [Unknown]

NARRATIVE: CASE EVENT DATE: 201304
